FAERS Safety Report 13504122 (Version 2)
Quarter: 2017Q2

REPORT INFORMATION
  Report Type: Report from Study
  Country: CA (occurrence: CA)
  Receive Date: 20170502
  Receipt Date: 20170606
  Transmission Date: 20170830
  Serious: Yes (Other)
  Sender: FDA-Public Use
  Company Number: PHHY2013CA071807

PATIENT
  Age: 70 Year
  Sex: Male

DRUGS (2)
  1. SANDOSTATIN [Suspect]
     Active Substance: OCTREOTIDE ACETATE
     Indication: NEUROENDOCRINE CARCINOMA
     Dosage: 100 UG, ONCE/SINGLE
     Route: 058
     Dates: start: 20130503, end: 20130503
  2. SANDOSTATIN LAR DEPOT [Suspect]
     Active Substance: OCTREOTIDE ACETATE
     Indication: NEUROENDOCRINE CARCINOMA
     Dosage: 30 MG, QMO (EVERY 4 WEEKS)
     Route: 030
     Dates: start: 20130509, end: 20151223

REACTIONS (16)
  - Abdominal discomfort [Recovered/Resolved]
  - Headache [Unknown]
  - Malignant neoplasm progression [Unknown]
  - Blood pressure diastolic decreased [Unknown]
  - Body temperature increased [Unknown]
  - Decreased appetite [Unknown]
  - Heart rate decreased [Unknown]
  - Hyperglycaemia [Unknown]
  - Dizziness [Unknown]
  - Sinusitis [Unknown]
  - Needle issue [Unknown]
  - Asthenia [Unknown]
  - Hepatic neoplasm [Unknown]
  - Blood pressure systolic increased [Unknown]
  - Injection site haemorrhage [Unknown]
  - Fatigue [Unknown]

NARRATIVE: CASE EVENT DATE: 2014
